APPROVED DRUG PRODUCT: MEROPENEM
Active Ingredient: MEROPENEM
Strength: 500MG/VIAL
Dosage Form/Route: INJECTABLE;INJECTION
Application: A091404 | Product #001 | TE Code: AP
Applicant: ACS DOBFAR SPA
Approved: Oct 26, 2011 | RLD: No | RS: Yes | Type: RX